FAERS Safety Report 9409655 (Version 2)
Quarter: 2013Q3

REPORT INFORMATION
  Report Type: Spontaneous
  Country: US (occurrence: US)
  Receive Date: 20130719
  Receipt Date: 20130801
  Transmission Date: 20140515
  Serious: Yes (Other)
  Sender: FDA-Public Use
  Company Number: US-PFIZER INC-2013211477

PATIENT
  Age: 45 Year
  Sex: Male

DRUGS (6)
  1. TIZANIDINE [Suspect]
     Indication: MUSCLE RELAXANT THERAPY
     Dosage: 4 MG, UNK
  2. AMBIEN [Concomitant]
     Indication: INSOMNIA
     Dosage: UNK
  3. LORTAB [Concomitant]
     Indication: BACK PAIN
     Dosage: UNK, 3X/DAY
  4. LYRICA [Suspect]
     Indication: NEURALGIA
     Dosage: 50 MG, 3X/DAY
  5. LYRICA [Suspect]
     Indication: HIP ARTHROPLASTY
  6. CELEBREX [Suspect]
     Indication: ARTHRITIS
     Dosage: 200 MG, 2X/DAY

REACTIONS (4)
  - Dysstasia [Unknown]
  - Activities of daily living impaired [Unknown]
  - Drug ineffective [Unknown]
  - Somnolence [Unknown]
